FAERS Safety Report 15357696 (Version 5)
Quarter: 2019Q1

REPORT INFORMATION
  Report Type: Spontaneous
  Country: US (occurrence: US)
  Receive Date: 20180906
  Receipt Date: 20190129
  Transmission Date: 20190417
  Serious: Yes (Hospitalization)
  Sender: FDA-Public Use
  Company Number: US-ACTELION-A-NJ2018-178339

PATIENT
  Age: 77 Year
  Sex: Male
  Weight: 74.83 kg

DRUGS (4)
  1. TRACLEER [Suspect]
     Active Substance: BOSENTAN
     Indication: PULMONARY ARTERIAL HYPERTENSION
     Dosage: 125 MG, BID
     Route: 048
  2. REVATIO [Concomitant]
     Active Substance: SILDENAFIL CITRATE
  3. ELIQUIS [Concomitant]
     Active Substance: APIXABAN
  4. REMODULIN [Concomitant]
     Active Substance: TREPROSTINIL

REACTIONS (8)
  - Vascular device infection [Unknown]
  - Sepsis [Unknown]
  - Heart rate increased [Unknown]
  - Catheter site infection [Unknown]
  - Heart rate decreased [Unknown]
  - Cardiac disorder [Unknown]
  - Syncope [Unknown]
  - Catheter placement [Unknown]
